FAERS Safety Report 9961391 (Version 1)
Quarter: 2014Q1

REPORT INFORMATION
  Report Type: Report from Study
  Country: JP (occurrence: JP)
  Receive Date: 20140305
  Receipt Date: 20140305
  Transmission Date: 20141002
  Serious: Yes (Other)
  Sender: FDA-Public Use
  Company Number: JP-JNJFOC-20140300896

PATIENT
  Age: 45 Year
  Sex: Female
  Weight: 44 kg

DRUGS (18)
  1. SIMPONI [Suspect]
     Indication: RHEUMATOID ARTHRITIS
     Route: 058
     Dates: start: 20121204
  2. SIMPONI [Suspect]
     Indication: RHEUMATOID ARTHRITIS
     Route: 058
     Dates: start: 20121228
  3. SIMPONI [Suspect]
     Indication: RHEUMATOID ARTHRITIS
     Route: 058
     Dates: start: 20130129
  4. SIMPONI [Suspect]
     Indication: RHEUMATOID ARTHRITIS
     Route: 058
     Dates: start: 20130226
  5. SIMPONI [Suspect]
     Indication: RHEUMATOID ARTHRITIS
     Route: 058
     Dates: start: 20130517
  6. PREDONINE [Suspect]
     Indication: RHEUMATOID ARTHRITIS
     Route: 048
     Dates: start: 20130129, end: 20130325
  7. PREDONINE [Suspect]
     Indication: RHEUMATOID ARTHRITIS
     Route: 048
     Dates: start: 20130326
  8. PREDONINE [Suspect]
     Indication: RHEUMATOID ARTHRITIS
     Route: 048
     Dates: end: 20130128
  9. REBAMIPIDE [Concomitant]
     Indication: PROPHYLAXIS
     Route: 065
  10. NEXIUM [Concomitant]
     Indication: PROPHYLAXIS
     Route: 048
  11. AVAPRO [Concomitant]
     Indication: HYPERTENSION
     Route: 048
  12. MAGLAX [Concomitant]
     Indication: CONSTIPATION
     Route: 048
  13. SENNOSIDE [Concomitant]
     Indication: CONSTIPATION
     Route: 048
  14. HYALEIN [Concomitant]
     Indication: SJOGREN^S SYNDROME
     Route: 047
  15. FORTEO [Concomitant]
     Indication: OSTEOPOROSIS
     Route: 058
  16. GEBEN [Concomitant]
     Indication: CYST
     Route: 061
  17. TRAFERMIN [Concomitant]
     Indication: SYSTEMIC LUPUS ERYTHEMATOSUS
     Route: 061
  18. LOXOPROFEN [Concomitant]
     Indication: RHEUMATOID ARTHRITIS
     Route: 048

REACTIONS (3)
  - Herpes zoster disseminated [Recovered/Resolved]
  - Skin infection [Recovered/Resolved]
  - Trigeminal neuralgia [Recovered/Resolved]
